FAERS Safety Report 7486640-4 (Version None)
Quarter: 2011Q2

REPORT INFORMATION
  Report Type: 
  Country: None (occurrence: None)
  Receive Date: 20110517
  Receipt Date: 20100712
  Transmission Date: 20111010
  Serious: No
  Sender: FDA-Public Use
  Company Number: US-NOVEN-ALL1-2010-03825

PATIENT

DRUGS (3)
  1. DAYTRANA [Suspect]
     Dosage: UNK MG, 1X/DAY:QD HALF OF A CUT 20 MG PATCH DAILY
     Route: 062
     Dates: start: 20100601, end: 20100711
  2. DAYTRANA [Suspect]
     Dosage: 20 MG, 1X/DAY:QD
     Route: 062
     Dates: start: 20100712
  3. DAYTRANA [Suspect]
     Dosage: 10 MG, 1X/DAY:QD
     Route: 062
     Dates: start: 20100601, end: 20100601

REACTIONS (8)
  - NEGATIVISM [None]
  - HYPERSOMNIA [None]
  - WRONG TECHNIQUE IN DRUG USAGE PROCESS [None]
  - OFF LABEL USE [None]
  - SOCIAL AVOIDANT BEHAVIOUR [None]
  - AGGRESSION [None]
  - CRYING [None]
  - FEAR [None]
